FAERS Safety Report 7015040-6 (Version None)
Quarter: 2010Q3

REPORT INFORMATION
  Report Type: 
  Country: None (occurrence: None)
  Receive Date: 20100927
  Receipt Date: 20100916
  Transmission Date: 20110219
  Serious: Yes (Disabling)
  Sender: FDA-Public Use
  Company Number: -SANOFI-AVENTIS-2010SA032426

PATIENT
  Age: 54 Year
  Sex: Female

DRUGS (4)
  1. PLAQUENIL [Suspect]
     Indication: SERONEGATIVE ARTHRITIS
     Route: 048
     Dates: start: 20081125, end: 20090526
  2. BUSCOPAN [Concomitant]
     Indication: GALLBLADDER DISORDER
     Route: 065
  3. TODOLAC [Concomitant]
     Route: 048
  4. SIMVASTATIN [Concomitant]
     Indication: HYPERCHOLESTEROLAEMIA
     Route: 065

REACTIONS (2)
  - DEAFNESS [None]
  - TINNITUS [None]
